FAERS Safety Report 6742622-9 (Version None)
Quarter: 2010Q2

REPORT INFORMATION
  Report Type: 
  Country: None (occurrence: None)
  Receive Date: 20100524
  Receipt Date: 20100407
  Transmission Date: 20101027
  Serious: No
  Sender: FDA-Public Use
  Company Number: ACO_00683_2010

PATIENT
  Age: 51 Year
  Sex: Female
  Weight: 63.5036 kg

DRUGS (4)
  1. AMPYRA [Suspect]
     Indication: MULTIPLE SCLEROSIS
     Dosage: (10 MG BID ORAL)
     Route: 048
     Dates: start: 20100402, end: 20100403
  2. COPAXONE [Concomitant]
  3. CALCIUM W/VITAMINS NOS [Concomitant]
  4. BONIVA [Concomitant]

REACTIONS (3)
  - DIZZINESS [None]
  - FEELING COLD [None]
  - NAUSEA [None]
